FAERS Safety Report 8848994 (Version 1)
Quarter: 2012Q4

REPORT INFORMATION
  Report Type: Spontaneous
  Country: SE (occurrence: None)
  Receive Date: 20121006
  Receipt Date: 20121006
  Transmission Date: 20130627
  Serious: Yes (Other)
  Sender: FDA-Public Use
  Company Number: 2012-4586

PATIENT
  Sex: Female

DRUGS (3)
  1. DYSPORT [Suspect]
     Dosage: Not reported (1 in 1 cycle (s))
  2. DYSPORT [Suspect]
     Dosage: Not reported (1 in 1 cycle (s))
  3. NEUROBLOC [Suspect]

REACTIONS (2)
  - Disease recurrence [None]
  - Guillain-Barre syndrome [None]
